FAERS Safety Report 8055167-3 (Version None)
Quarter: 2012Q1

REPORT INFORMATION
  Report Type: 
  Country: None (occurrence: None)
  Receive Date: 20120119
  Receipt Date: 20120110
  Transmission Date: 20120608
  Serious: Yes (Other)
  Sender: FDA-Public Use
  Company Number: PHHY2012ES001950

PATIENT
  Age: 87 Year
  Sex: Female

DRUGS (4)
  1. SINTROM [Interacting]
     Indication: ATRIAL FIBRILLATION
     Route: 048
     Dates: start: 20050101, end: 20111009
  2. STALEVO 100 [Suspect]
     Indication: PARKINSON'S DISEASE
     Dates: start: 20080704
  3. ALDACTONE [Concomitant]
     Indication: CARDIAC FAILURE
     Route: 048
     Dates: start: 20080704
  4. DEXKETOPROFEN [Interacting]
     Indication: PAIN
     Dosage: 25 MG, QD
     Route: 048
     Dates: start: 20111009, end: 20111009

REACTIONS (5)
  - ANAEMIA [None]
  - DRUG INTERACTION [None]
  - COAGULOPATHY [None]
  - HAEMATOMA [None]
  - INTERNATIONAL NORMALISED RATIO INCREASED [None]
